FAERS Safety Report 9189539 (Version 1)
Quarter: 2013Q1

REPORT INFORMATION
  Report Type: Spontaneous
  Country: DE (occurrence: DE)
  Receive Date: 20130326
  Receipt Date: 20130326
  Transmission Date: 20140127
  Serious: Yes (Other)
  Sender: FDA-Public Use
  Company Number: DE-ELI_LILLY_AND_COMPANY-DE201303006031

PATIENT
  Sex: Female

DRUGS (3)
  1. HUMALOG LISPRO [Suspect]
     Dosage: UNK
     Route: 058
     Dates: start: 201104
  2. L-THYROXINE [Concomitant]
  3. PANTOPRAZOL [Concomitant]

REACTIONS (2)
  - Ketoacidosis [Not Recovered/Not Resolved]
  - Blood glucose abnormal [Not Recovered/Not Resolved]
